FAERS Safety Report 6664377-9 (Version None)
Quarter: 2010Q2

REPORT INFORMATION
  Report Type: 
  Country: None (occurrence: None)
  Receive Date: 20100401
  Receipt Date: 20100326
  Transmission Date: 20101027
  Serious: Yes (Hospitalization)
  Sender: FDA-Public Use
  Company Number: GXKR2010IT03695

PATIENT
  Sex: Female

DRUGS (3)
  1. ATENOLOL [Suspect]
     Route: 065
  2. BROMAZEPAM (NGX) [Suspect]
     Route: 065
  3. TRIAZOLAM (NGX) [Suspect]
     Route: 065

REACTIONS (3)
  - LOSS OF CONSCIOUSNESS [None]
  - SOPOR [None]
  - SYNCOPE [None]
